FAERS Safety Report 16354035 (Version 3)
Quarter: 2019Q3

REPORT INFORMATION
  Report Type: Spontaneous
  Country: AU (occurrence: AU)
  Receive Date: 20190524
  Receipt Date: 20190925
  Transmission Date: 20191004
  Serious: Yes (Other)
  Sender: FDA-Public Use
  Company Number: AU-ROCHE-2323554

PATIENT
  Age: 77 Year
  Sex: Male
  Weight: 81.7 kg

DRUGS (8)
  1. ACTILYSE [Suspect]
     Active Substance: ALTEPLASE
     Indication: ISCHAEMIC STROKE
     Route: 040
  2. ACTILYSE [Suspect]
     Active Substance: ALTEPLASE
     Dosage: GIVEN OVER 60 MINUTES
     Route: 041
  3. NEBIVOLOL. [Concomitant]
     Active Substance: NEBIVOLOL
     Route: 065
  4. PRADAXA [Suspect]
     Active Substance: DABIGATRAN ETEXILATE MESYLATE
     Indication: ATRIAL FIBRILLATION
     Route: 065
  5. PERINDOPRIL [Concomitant]
     Active Substance: PERINDOPRIL
     Route: 065
  6. ROSUVASTATIN. [Concomitant]
     Active Substance: ROSUVASTATIN
     Route: 065
  7. SPIRONOLACTONE. [Concomitant]
     Active Substance: SPIRONOLACTONE
     Route: 065
  8. IDARUCIZUMAB [Concomitant]
     Active Substance: IDARUCIZUMAB
     Route: 042

REACTIONS (2)
  - Acute myocardial infarction [Unknown]
  - Traumatic haemorrhage [Unknown]
